FAERS Safety Report 8343794-5 (Version None)
Quarter: 2012Q1

REPORT INFORMATION
  Report Type: 
  Country: None (occurrence: None)
  Receive Date: 20120330
  Receipt Date: 20111108
  Transmission Date: 20120608
  Serious: Yes (Other)
  Sender: FDA-Public Use
  Company Number: PHEH2011US05716

PATIENT
  Age: 82 Year
  Sex: Male
  Weight: 70.0354 kg

DRUGS (7)
  1. CILOSTAZOL [Concomitant]
  2. ASPIRIN [Concomitant]
  3. EXELON [Suspect]
     Indication: DEMENTIA
     Dosage: 1 DF, EVERY 3RD DAY, TRANSDERMAL
     Route: 062
     Dates: start: 20110401, end: 20110901
  4. LISINOPRIL [Concomitant]
  5. FERROUS SO4 (FERROUS SULFATE) [Concomitant]
  6. SYMBICORT [Concomitant]
  7. NIFEDIPINE [Concomitant]

REACTIONS (4)
  - APPLICATION SITE VESICLES [None]
  - APPLICATION SITE PRURITUS [None]
  - APPLICATION SITE ERYTHEMA [None]
  - APPLICATION SITE RASH [None]
